FAERS Safety Report 4803945-3 (Version None)
Quarter: 2005Q3

REPORT INFORMATION
  Report Type: 
  Country: None (occurrence: None)
  Receive Date: 20050920
  Receipt Date: 20050610
  Transmission Date: 20060218
  Serious: No
  Sender: FDA-Public Use
  Company Number: US-YAMANOUCHI-YPA20050309

PATIENT
  Age: 77 Year
  Sex: Male
  Weight: 45.3597 kg

DRUGS (9)
  1. VESICARE [Suspect]
     Indication: HYPERTONIC BLADDER
     Dosage: 5 MG QD PO
     Route: 048
     Dates: start: 20050604
  2. MIACALCIN [Concomitant]
  3. LIPITOR [Concomitant]
  4. SAW PALMETTO [Concomitant]
  5. ASPIRIN [Concomitant]
  6. ASCORBIC ACID [Concomitant]
  7. VITAMIN D [Concomitant]
  8. CALCIUM GLUCONATE [Concomitant]
  9. IRON [Concomitant]

REACTIONS (3)
  - BALANCE DISORDER [None]
  - DIZZINESS [None]
  - TINNITUS [None]
